FAERS Safety Report 24691069 (Version 6)
Quarter: 2025Q2

REPORT INFORMATION
  Report Type: Report from Study
  Country: CA (occurrence: CA)
  Receive Date: 20241203
  Receipt Date: 20250630
  Transmission Date: 20250717
  Serious: Yes (Other)
  Sender: TAKEDA
  Company Number: CA-TAKEDA-2024TUS119857

PATIENT
  Age: 27 Year
  Sex: Male

DRUGS (5)
  1. VEDOLIZUMAB [Suspect]
     Active Substance: VEDOLIZUMAB
     Indication: Colitis ulcerative
  2. VEDOLIZUMAB [Suspect]
     Active Substance: VEDOLIZUMAB
  3. VEDOLIZUMAB [Suspect]
     Active Substance: VEDOLIZUMAB
     Dosage: 300 MILLIGRAM, Q4WEEKS
     Dates: start: 20250328
  4. VEDOLIZUMAB [Suspect]
     Active Substance: VEDOLIZUMAB
     Dosage: 300 MILLIGRAM, Q4WEEKS
     Dates: end: 20250619
  5. RIFAMPIN [Concomitant]
     Active Substance: RIFAMPIN

REACTIONS (8)
  - Haematochezia [Unknown]
  - Off label use [Unknown]
  - Latent tuberculosis [Recovering/Resolving]
  - Impaired work ability [Unknown]
  - Frequent bowel movements [Unknown]
  - Social problem [Unknown]
  - Mucous stools [Recovering/Resolving]
  - Loss of therapeutic response [Unknown]

NARRATIVE: CASE EVENT DATE: 20250328
